FAERS Safety Report 7821851-7 (Version None)
Quarter: 2011Q4

REPORT INFORMATION
  Report Type: 
  Country: None (occurrence: None)
  Receive Date: 20111018
  Receipt Date: 20110630
  Transmission Date: 20120403
  Serious: No
  Sender: FDA-Public Use
  Company Number: US-ASTRAZENECA-2011SE39367

PATIENT
  Age: 48 Year
  Sex: Female

DRUGS (1)
  1. SYMBICORT [Suspect]
     Indication: ASTHMA
     Dosage: 80/4.5, TWO PUFFS,TWO TIMES A DAY
     Route: 055
     Dates: start: 20110629

REACTIONS (1)
  - OEDEMA PERIPHERAL [None]
